FAERS Safety Report 8784406 (Version 1)
Quarter: 2012Q4

REPORT INFORMATION
  Report Type: Spontaneous
  Country: GB (occurrence: None)
  Receive Date: 20120830
  Receipt Date: 20120830
  Transmission Date: 20130627
  Serious: Yes (Life-Threatening)
  Sender: FDA-Public Use
  Company Number: GER/UKI/12/0025501

PATIENT
  Age: 69 Year
  Sex: Male

DRUGS (12)
  1. OLANZAPINE [Suspect]
     Indication: AGITATION
     Dosage: 2 i n 1 day
     Route: 048
     Dates: start: 20120720
  2. ALLOPURINOL (ALLOPURINOL) [Concomitant]
  3. AMLODIPINE AMLODIPINE) [Concomitant]
  4. ASPIRIN ACETYLSALICYLIC ACID) [Concomitant]
  5. ATENOLOL ATENOLOL) [Concomitant]
  6. ATORVASTATIN ATORVASTATIN) [Concomitant]
  7. FLUOXETINE (FLUOXETINE) [Concomitant]
  8. FUROSEMIDE (FUROSEMIDE) [Concomitant]
  9. METFORMIN (METFORMIN) [Concomitant]
  10. RAMIPRIL (RAMIPRIL) [Concomitant]
  11. RANITIDINE (RANITIDINE) [Concomitant]
  12. TAMSULOSIN (TAMSULOSIN) [Concomitant]

REACTIONS (2)
  - Ventricular tachycardia [None]
  - Acute myocardial infarction [None]
